FAERS Safety Report 7817562-4 (Version None)
Quarter: 2011Q4

REPORT INFORMATION
  Report Type: 
  Country: None (occurrence: None)
  Receive Date: 20111017
  Receipt Date: 20111009
  Transmission Date: 20120403
  Serious: Yes (Other)
  Sender: FDA-Public Use
  Company Number: PHFR2011GB05773

PATIENT
  Sex: Male

DRUGS (1)
  1. CLOZARIL [Suspect]
     Indication: SCHIZOPHRENIA
     Dosage: 850 MG
     Route: 048
     Dates: start: 20100311, end: 20111003

REACTIONS (5)
  - ASTHENIA [None]
  - TENSION [None]
  - LETHARGY [None]
  - VISION BLURRED [None]
  - MUSCULOSKELETAL STIFFNESS [None]
